FAERS Safety Report 6139006-3 (Version None)
Quarter: 2009Q1

REPORT INFORMATION
  Report Type: 
  Country: None (occurrence: None)
  Receive Date: 20090330
  Receipt Date: 20090310
  Transmission Date: 20090719
  Serious: Yes (Other)
  Sender: FDA-Public Use
  Company Number: 2009US000734

PATIENT

DRUGS (1)
  1. AMEVIVE [Suspect]
     Indication: GRAFT VERSUS HOST DISEASE
     Dosage: UNK, WEEKLY, INTRAMUSCULAR
     Route: 030

REACTIONS (1)
  - PERICARDITIS [None]
